FAERS Safety Report 9750734 (Version 1)
Quarter: 2013Q4

REPORT INFORMATION
  Report Type: Spontaneous
  Country: US (occurrence: US)
  Receive Date: 20131212
  Receipt Date: 20131212
  Transmission Date: 20140711
  Serious: No
  Sender: FDA-Public Use
  Company Number: US-BIOGENIDEC-2013BI094032

PATIENT
  Sex: Female

DRUGS (10)
  1. TECFIDERA [Suspect]
     Indication: PRODUCT USED FOR UNKNOWN INDICATION
     Route: 048
  2. LINZESS [Concomitant]
  3. VITAMIN D3 [Concomitant]
  4. SYNTHROID [Concomitant]
  5. LEVSIN [Concomitant]
  6. NEXIUM [Concomitant]
  7. MIRALAX POW 3350 NF [Concomitant]
  8. IBUPROFEN [Concomitant]
  9. ZYRTEC [Concomitant]
  10. SRONYX [Concomitant]

REACTIONS (1)
  - Constipation [Unknown]
